FAERS Safety Report 20139832 (Version 1)
Quarter: 2021Q4

REPORT INFORMATION
  Report Type: Spontaneous
  Country: US (occurrence: None)
  Receive Date: 20211201
  Receipt Date: 20211201
  Transmission Date: 20220303
  Serious: No
  Sender: FDA-Public Use
  Company Number: None

PATIENT
  Age: 38 Year
  Sex: Female

DRUGS (1)
  1. HYDROXYCHLOROQUINE SULFATE [Suspect]
     Active Substance: HYDROXYCHLOROQUINE SULFATE
     Indication: Sjogren^s syndrome
     Dosage: FREQUENCY : DAILY;?
     Route: 048
     Dates: start: 20170628, end: 20171204

REACTIONS (5)
  - Skin burning sensation [None]
  - Abdominal discomfort [None]
  - Product substitution issue [None]
  - Nausea [None]
  - Vomiting [None]
